FAERS Safety Report 15234732 (Version 1)
Quarter: 2018Q3

REPORT INFORMATION
  Report Type: Spontaneous
  Country: US (occurrence: US)
  Receive Date: 20180803
  Receipt Date: 20180803
  Transmission Date: 20181010
  Serious: No
  Sender: FDA-Public Use
  Company Number: US-009507513-1807USA004632

PATIENT
  Age: 37 Year
  Sex: Female
  Weight: 71.66 kg

DRUGS (2)
  1. NEXPLANON [Suspect]
     Active Substance: ETONOGESTREL
     Indication: CONTRACEPTION
     Dosage: 1 LEFT ARM IMPLANT, 3 YEAR
     Route: 059
     Dates: start: 20180620
  2. IBUPROFEN. [Concomitant]
     Active Substance: IBUPROFEN
     Dosage: UNK

REACTIONS (4)
  - Back pain [Unknown]
  - Headache [Unknown]
  - Abdominal pain [Unknown]
  - Menorrhagia [Unknown]

NARRATIVE: CASE EVENT DATE: 2018
